FAERS Safety Report 6611271-5 (Version None)
Quarter: 2010Q1

REPORT INFORMATION
  Report Type: 
  Country: None (occurrence: None)
  Receive Date: 20100301
  Receipt Date: 20100301
  Transmission Date: 20100710
  Serious: Yes (Other)
  Sender: FDA-Public Use
  Company Number: None

PATIENT
  Age: 56 Year
  Sex: Male
  Weight: 90.7194 kg

DRUGS (1)
  1. RESTASIS [Suspect]
     Dosage: 1 DROP INTO EACH EYE ONCE DAILY OPHTHALMIC
     Route: 047
     Dates: start: 20091230, end: 20100114

REACTIONS (2)
  - EYE IRRITATION [None]
  - PRODUCT QUALITY ISSUE [None]
